APPROVED DRUG PRODUCT: PRASUGREL
Active Ingredient: PRASUGREL HYDROCHLORIDE
Strength: EQ 5MG BASE
Dosage Form/Route: TABLET;ORAL
Application: A206021 | Product #001 | TE Code: AB
Applicant: HEC PHARM USA INC
Approved: Jan 16, 2019 | RLD: No | RS: No | Type: RX